FAERS Safety Report 13578345 (Version 1)
Quarter: 2017Q2

REPORT INFORMATION
  Report Type: Spontaneous
  Country: US (occurrence: US)
  Receive Date: 20170524
  Receipt Date: 20170524
  Transmission Date: 20170830
  Serious: Yes (Other)
  Sender: FDA-Public Use
  Company Number: PHHY2017US071331

PATIENT
  Age: 8 Year
  Sex: Male

DRUGS (4)
  1. PEG/L-ASPARAGINASE [Interacting]
     Active Substance: PEGASPARGASE
     Indication: PRODUCT USED FOR UNKNOWN INDICATION
     Dosage: (2,200 IU; 2,500 IU/M2
     Route: 065
  2. 6-MERCAPTOPURINE MONOHYDRATE [Concomitant]
     Active Substance: MERCAPTOPURINE
     Indication: LYMPHOCYTIC LEUKAEMIA
     Route: 065
  3. METHOTREXATE. [Concomitant]
     Active Substance: METHOTREXATE
     Indication: LYMPHOCYTIC LEUKAEMIA
     Route: 065
  4. VORICONAZOLE. [Suspect]
     Active Substance: VORICONAZOLE
     Indication: PRODUCT USED FOR UNKNOWN INDICATION
     Dosage: 216 MG, QD MORE THAN 2 MONTHS
     Route: 042

REACTIONS (3)
  - Toxicity to various agents [Unknown]
  - Hepatic failure [Recovered/Resolved]
  - Drug interaction [Unknown]
